FAERS Safety Report 7826664-8 (Version None)
Quarter: 2011Q4

REPORT INFORMATION
  Report Type: 
  Country: None (occurrence: None)
  Receive Date: 20111018
  Receipt Date: 20111005
  Transmission Date: 20120403
  Serious: Yes (Other)
  Sender: FDA-Public Use
  Company Number: 1000023694

PATIENT
  Age: 44 Year
  Sex: Female
  Weight: 55.34 kg

DRUGS (10)
  1. XANAX [Concomitant]
  2. REGLAN [Concomitant]
  3. LORCET (VICODIN) (VICODIN) [Concomitant]
  4. VIIBRYD [Suspect]
     Indication: DEPRESSION
     Dosage: 40 MG (40 MG, 1 IN 1 D), ORAL
     Route: 048
     Dates: start: 20110826, end: 20110830
  5. NEXIUM [Concomitant]
  6. AMBIEN [Concomitant]
  7. VIIBRYD [Suspect]
     Indication: DEPRESSION
     Dosage: 10 MG (10 MG, 1 IN 1 D), ORAL, 20 MG (20 MG, 1 IN 1 D), ORAL
     Route: 048
     Dates: start: 20110812, end: 20110818
  8. VIIBRYD [Suspect]
     Indication: DEPRESSION
     Dosage: 10 MG (10 MG, 1 IN 1 D), ORAL, 20 MG (20 MG, 1 IN 1 D), ORAL
     Route: 048
     Dates: start: 20110819, end: 20110825
  9. CLARITIN [Concomitant]
  10. VESICARE (SOLIFENACIN SUCCINATE) (SOLIFENACIN SUCCINATE) [Concomitant]

REACTIONS (5)
  - SUICIDE ATTEMPT [None]
  - CONDITION AGGRAVATED [None]
  - DEPRESSION [None]
  - INTENTIONAL SELF-INJURY [None]
  - LACERATION [None]
